FAERS Safety Report 17997729 (Version 5)
Quarter: 2021Q4

REPORT INFORMATION
  Report Type: Report from Study
  Country: JP (occurrence: JP)
  Receive Date: 20200708
  Receipt Date: 20211224
  Transmission Date: 20220303
  Serious: Yes (Death, Hospitalization, Other)
  Sender: FDA-Public Use
  Company Number: JP-002147023-NVSJ2020JP006311

PATIENT

DRUGS (50)
  1. RUXOLITINIB [Suspect]
     Active Substance: RUXOLITINIB
     Indication: Myelofibrosis
     Dosage: 10 MG, BID
     Route: 048
     Dates: start: 20180223, end: 20180227
  2. RUXOLITINIB [Suspect]
     Active Substance: RUXOLITINIB
     Dosage: 15 MG, BID
     Route: 048
     Dates: start: 20180228, end: 20180308
  3. RUXOLITINIB [Suspect]
     Active Substance: RUXOLITINIB
     Dosage: 35 MG
     Route: 048
     Dates: start: 20180309, end: 20180316
  4. RUXOLITINIB [Suspect]
     Active Substance: RUXOLITINIB
     Dosage: 20 MG, BID
     Route: 048
     Dates: start: 20180317, end: 20180325
  5. RUXOLITINIB [Suspect]
     Active Substance: RUXOLITINIB
     Dosage: 45 MG (IN TWO DIVIDED DOSES), BID
     Route: 048
     Dates: start: 20180326, end: 20180413
  6. RUXOLITINIB [Suspect]
     Active Substance: RUXOLITINIB
     Dosage: 20 MG, BID
     Route: 048
     Dates: start: 20180414, end: 20180416
  7. RUXOLITINIB [Suspect]
     Active Substance: RUXOLITINIB
     Dosage: 35 MG (IN TWO DIVIDED DOSES), BID
     Route: 048
     Dates: start: 20180417, end: 20180510
  8. RUXOLITINIB [Suspect]
     Active Substance: RUXOLITINIB
     Dosage: 15 MG, BID
     Route: 048
     Dates: start: 20180511, end: 20180516
  9. RUXOLITINIB [Suspect]
     Active Substance: RUXOLITINIB
     Dosage: 35 MG (IN TWO DIVIDED DOSES), BID
     Route: 048
     Dates: start: 20180517, end: 20180614
  10. JADENU [Suspect]
     Active Substance: DEFERASIROX
     Indication: Iron overload
     Dosage: UNK
     Route: 048
     Dates: start: 20180509, end: 20180614
  11. GANCICLOVIR [Suspect]
     Active Substance: GANCICLOVIR
     Indication: Product used for unknown indication
     Dosage: 70 MG
     Route: 065
     Dates: end: 20180322
  12. GANCICLOVIR [Suspect]
     Active Substance: GANCICLOVIR
     Dosage: 70 MG
     Route: 065
     Dates: start: 20180328, end: 20180404
  13. GANCICLOVIR [Suspect]
     Active Substance: GANCICLOVIR
     Dosage: 90 MG
     Route: 065
     Dates: start: 20180417, end: 20180419
  14. GANCICLOVIR [Suspect]
     Active Substance: GANCICLOVIR
     Dosage: 90 MG
     Route: 065
     Dates: start: 20180423, end: 20180429
  15. GANCICLOVIR [Suspect]
     Active Substance: GANCICLOVIR
     Dosage: 90 MG
     Route: 065
     Dates: start: 20180506, end: 20180613
  16. VALGANCICLOVIR [Suspect]
     Active Substance: VALGANCICLOVIR
     Indication: Product used for unknown indication
     Dosage: 360 MG, UNK
     Route: 048
     Dates: start: 20180323, end: 20180403
  17. VALGANCICLOVIR [Suspect]
     Active Substance: VALGANCICLOVIR
     Dosage: 900 MG, UNK
     Route: 048
     Dates: start: 20180404, end: 20180419
  18. VALGANCICLOVIR [Suspect]
     Active Substance: VALGANCICLOVIR
     Dosage: 1350MG, UNK
     Route: 048
     Dates: start: 20180420, end: 20180507
  19. CEFEPIME HYDROCHLORIDE [Suspect]
     Active Substance: CEFEPIME HYDROCHLORIDE
     Indication: Product used for unknown indication
     Dosage: 1.35 G
     Route: 065
     Dates: start: 20180224, end: 20180302
  20. CEFEPIME HYDROCHLORIDE [Suspect]
     Active Substance: CEFEPIME HYDROCHLORIDE
     Dosage: 1.5G, UNK
     Route: 065
     Dates: start: 20180326, end: 20180402
  21. CEFEPIME HYDROCHLORIDE [Suspect]
     Active Substance: CEFEPIME HYDROCHLORIDE
     Dosage: 2.1G, UNK
     Route: 065
     Dates: start: 20180510, end: 20180518
  22. VFEND [Suspect]
     Active Substance: VORICONAZOLE
     Indication: Product used for unknown indication
     Dosage: 340 MG, UNK
     Route: 065
     Dates: start: 20180514, end: 20180514
  23. VFEND [Suspect]
     Active Substance: VORICONAZOLE
     Dosage: 300 MG
     Route: 065
     Dates: start: 20180515, end: 20180613
  24. SULFAMETHOXAZOLE\TRIMETHOPRIM [Concomitant]
     Active Substance: SULFAMETHOXAZOLE\TRIMETHOPRIM
     Indication: Opportunistic infection prophylaxis
     Dosage: UNK, 3 TIMES/WEEK
     Route: 048
     Dates: end: 20180418
  25. SULFAMETHOXAZOLE\TRIMETHOPRIM [Concomitant]
     Active Substance: SULFAMETHOXAZOLE\TRIMETHOPRIM
     Dosage: UNK, 3 TIMES/WEEK
     Route: 048
     Dates: start: 20180419, end: 20180614
  26. HUMAN RED BLOOD CELL [Concomitant]
     Active Substance: HUMAN RED BLOOD CELL
     Indication: Myelofibrosis
     Dosage: 2 U
     Route: 042
     Dates: start: 20180319, end: 20180319
  27. HUMAN RED BLOOD CELL [Concomitant]
     Active Substance: HUMAN RED BLOOD CELL
     Indication: Anaemia
     Dosage: 2 UNK
     Route: 042
     Dates: start: 20180407, end: 20180417
  28. HUMAN RED BLOOD CELL [Concomitant]
     Active Substance: HUMAN RED BLOOD CELL
     Dosage: 2 UNK
     Route: 042
     Dates: start: 20180506, end: 20180506
  29. HUMAN RED BLOOD CELL [Concomitant]
     Active Substance: HUMAN RED BLOOD CELL
     Dosage: 2 U
     Route: 042
     Dates: start: 20180510, end: 20180510
  30. HUMAN RED BLOOD CELL [Concomitant]
     Active Substance: HUMAN RED BLOOD CELL
     Dosage: 2 U
     Route: 042
     Dates: start: 20180530, end: 20180530
  31. HUMAN RED BLOOD CELL [Concomitant]
     Active Substance: HUMAN RED BLOOD CELL
     Dosage: 2 U
     Route: 042
     Dates: start: 20180609, end: 20180609
  32. HUMAN RED BLOOD CELL [Concomitant]
     Active Substance: HUMAN RED BLOOD CELL
     Dosage: 2 U
     Route: 042
     Dates: start: 20180614, end: 20180614
  33. PLATELETS [Concomitant]
     Active Substance: HUMAN PLATELET, ALLOGENIC
     Indication: Myelofibrosis
     Dosage: 10 U
     Route: 042
     Dates: start: 20180402, end: 20180402
  34. PLATELETS [Concomitant]
     Active Substance: HUMAN PLATELET, ALLOGENIC
     Dosage: 10 U
     Route: 042
     Dates: start: 20180417, end: 20180417
  35. PLATELETS [Concomitant]
     Active Substance: HUMAN PLATELET, ALLOGENIC
     Dosage: 10 U
     Route: 042
     Dates: start: 20180424, end: 20180424
  36. PLATELETS [Concomitant]
     Active Substance: HUMAN PLATELET, ALLOGENIC
     Dosage: 10 U
     Route: 042
     Dates: start: 20180507, end: 20180507
  37. PLATELETS [Concomitant]
     Active Substance: HUMAN PLATELET, ALLOGENIC
     Dosage: 10 U
     Route: 042
     Dates: start: 20180512, end: 20180512
  38. PLATELETS [Concomitant]
     Active Substance: HUMAN PLATELET, ALLOGENIC
     Dosage: 10 U
     Route: 042
     Dates: start: 20180518, end: 20180518
  39. PLATELETS [Concomitant]
     Active Substance: HUMAN PLATELET, ALLOGENIC
     Dosage: 10 U
     Route: 042
     Dates: start: 20180524, end: 20180524
  40. PLATELETS [Concomitant]
     Active Substance: HUMAN PLATELET, ALLOGENIC
     Dosage: 10 U
     Route: 042
     Dates: start: 20180528, end: 20180528
  41. PLATELETS [Concomitant]
     Active Substance: HUMAN PLATELET, ALLOGENIC
     Dosage: 10 U
     Route: 042
     Dates: start: 20180601, end: 20180601
  42. PLATELETS [Concomitant]
     Active Substance: HUMAN PLATELET, ALLOGENIC
     Dosage: 10 U
     Route: 042
     Dates: start: 20180606, end: 20180606
  43. PLATELETS [Concomitant]
     Active Substance: HUMAN PLATELET, ALLOGENIC
     Dosage: 10 U
     Route: 042
     Dates: start: 20180610, end: 20180610
  44. PLATELETS [Concomitant]
     Active Substance: HUMAN PLATELET, ALLOGENIC
     Dosage: 10 U
     Route: 042
     Dates: start: 20180613, end: 20180613
  45. PLATELETS [Concomitant]
     Active Substance: HUMAN PLATELET, ALLOGENIC
     Dosage: 10 U
     Route: 042
     Dates: start: 20180316, end: 20180316
  46. PLATELETS [Concomitant]
     Active Substance: HUMAN PLATELET, ALLOGENIC
     Dosage: 10 U
     Route: 042
     Dates: start: 20180430, end: 20180430
  47. PIPERACILLIN NA [Concomitant]
     Indication: Opportunistic infection prophylaxis
     Dosage: 1.5 G
     Route: 065
     Dates: end: 20180224
  48. PIPERACILLIN NA [Concomitant]
     Dosage: 1.8G, UNK
     Route: 065
     Dates: start: 20180302, end: 20180307
  49. PIPERACILLIN NA [Concomitant]
     Dosage: 3 G
     Route: 065
     Dates: start: 20180518, end: 20180614
  50. MICAFUNGIN SODIUM [Concomitant]
     Active Substance: MICAFUNGIN SODIUM
     Indication: Opportunistic infection prophylaxis
     Dosage: 40 MG, UNK
     Route: 065
     Dates: start: 20180328, end: 20180402

REACTIONS (16)
  - Anaemia [Not Recovered/Not Resolved]
  - Cytomegalovirus viraemia [Not Recovered/Not Resolved]
  - White blood cell count increased [Not Recovered/Not Resolved]
  - Blast cell count increased [Not Recovered/Not Resolved]
  - Liver disorder [Not Recovered/Not Resolved]
  - Lymphocyte count decreased [Not Recovered/Not Resolved]
  - Neutrophil count decreased [Unknown]
  - Platelet count decreased [Not Recovered/Not Resolved]
  - Pneumonia fungal [Fatal]
  - Product administered to patient of inappropriate age [Unknown]
  - Malignant neoplasm progression [Fatal]
  - Acute biphenotypic leukaemia [Fatal]
  - Leukaemic infiltration pulmonary [Unknown]
  - Purpura [Not Recovered/Not Resolved]
  - Drug resistance [Unknown]
  - White blood cell count decreased [Not Recovered/Not Resolved]

NARRATIVE: CASE EVENT DATE: 20180228
